FAERS Safety Report 7568694-X (Version None)
Quarter: 2011Q2

REPORT INFORMATION
  Report Type: 
  Country: None (occurrence: None)
  Receive Date: 20110623
  Receipt Date: 20110616
  Transmission Date: 20111010
  Serious: Yes (Other)
  Sender: FDA-Public Use
  Company Number: US-TEVA-286771USA

PATIENT
  Sex: Female
  Weight: 72.64 kg

DRUGS (2)
  1. ANXIETY MEDICATION [Concomitant]
     Indication: ANXIETY
  2. PLAN B ONE-STEP [Suspect]
     Indication: POST COITAL CONTRACEPTION
     Dosage: 1.5 MILLIGRAM;
     Route: 048
     Dates: start: 20100527, end: 20100527

REACTIONS (6)
  - ANXIETY [None]
  - ABORTION SPONTANEOUS [None]
  - VAGINAL HAEMORRHAGE [None]
  - PREGNANCY AFTER POST COITAL CONTRACEPTION [None]
  - MENSTRUATION IRREGULAR [None]
  - DRUG INEFFECTIVE [None]
